FAERS Safety Report 9123512 (Version 1)
Quarter: 2013Q1

REPORT INFORMATION
  Report Type: Spontaneous
  Country: US (occurrence: US)
  Receive Date: 20130115
  Receipt Date: 20130115
  Transmission Date: 20140127
  Serious: No
  Sender: FDA-Public Use
  Company Number: US-BAYER-2013-004243

PATIENT
  Age: 47 Year
  Sex: Female

DRUGS (3)
  1. MIRENA [Suspect]
     Indication: UTERINE HAEMORRHAGE
     Dosage: 20 MCG/24HR, CONT
     Route: 015
     Dates: start: 20130108
  2. AMLODIPINE BESYLATE W/BENAZEPRIL HYDROCHLOR. [Concomitant]
     Indication: HYPERTENSION
  3. ALPRAZOLAM [Concomitant]
     Dosage: UNK UNK, PRN

REACTIONS (1)
  - Off label use [None]
